FAERS Safety Report 4454717-3 (Version None)
Quarter: 2004Q3

REPORT INFORMATION
  Report Type: 
  Country: None (occurrence: None)
  Receive Date: 20040826
  Receipt Date: 20040601
  Transmission Date: 20050211
  Serious: Yes (Life-Threatening, Hospitalization)
  Sender: FDA-Public Use
  Company Number: 236040

PATIENT
  Age: 23 Year
  Sex: Female
  Weight: 72.6 kg

DRUGS (6)
  1. NOVOLOG MIX 70/30 [Suspect]
     Indication: DIABETES MELLITUS
     Dosage: 62 IU, QD
     Dates: start: 20040301, end: 20040401
  2. LIPITOR [Concomitant]
  3. CELEXA (CITALOPRAM HYDDROBROMIDE) [Concomitant]
  4. LAMICTAL [Concomitant]
  5. DEPAKOTE [Concomitant]
  6. NEURONTIN [Concomitant]

REACTIONS (2)
  - DIABETIC HYPERGLYCAEMIC COMA [None]
  - DIABETIC KETOACIDOSIS [None]
